FAERS Safety Report 4333699-9 (Version None)
Quarter: 2004Q2

REPORT INFORMATION
  Report Type: 
  Country: None (occurrence: None)
  Receive Date: 20040406
  Receipt Date: 20040406
  Transmission Date: 20050107
  Serious: Yes (Death)
  Sender: FDA-Public Use
  Company Number: None

PATIENT
  Age: 49 Year
  Sex: Male
  Weight: 108.8633 kg

DRUGS (6)
  1. EFFEXOR [Suspect]
     Indication: ANXIETY
     Dosage: 150 MG NIGHTLY
     Dates: start: 20030501, end: 20030724
  2. EFFEXOR [Suspect]
     Indication: DEPRESSION
     Dosage: 150 MG NIGHTLY
     Dates: start: 20030501, end: 20030724
  3. CONCERTA [Suspect]
     Indication: SOMNOLENCE
     Dosage: 27 MG DAILY +
     Dates: start: 20030201, end: 20030724
  4. RISPERDAL [Concomitant]
  5. SYNTHROID [Concomitant]
  6. ATKINS DIET [Concomitant]

REACTIONS (1)
  - INTENTIONAL SELF-INJURY [None]
